FAERS Safety Report 16071389 (Version 3)
Quarter: 2019Q4

REPORT INFORMATION
  Report Type: Spontaneous
  Country: US (occurrence: US)
  Receive Date: 20190314
  Receipt Date: 20191105
  Transmission Date: 20200122
  Serious: Yes (Other)
  Sender: FDA-Public Use
  Company Number: US-PFIZER INC-2019106942

PATIENT
  Age: 64 Year
  Sex: Male
  Weight: 133.81 kg

DRUGS (3)
  1. XELJANZ [Suspect]
     Active Substance: TOFACITINIB CITRATE
     Indication: RHEUMATOID ARTHRITIS
     Dosage: 5 MG, 2X/DAY
     Route: 048
     Dates: end: 2018
  2. METHOTREXATE. [Suspect]
     Active Substance: METHOTREXATE
     Dosage: 5MG, 4 TABLETS PER WEEK
  3. METHOTREXATE. [Suspect]
     Active Substance: METHOTREXATE
     Indication: RHEUMATOID ARTHRITIS
     Dosage: 10 MG, WEEKLY
     Route: 048
     Dates: start: 2018

REACTIONS (7)
  - Liver disorder [Unknown]
  - Renal disorder [Unknown]
  - Intentional product use issue [Unknown]
  - Condition aggravated [Unknown]
  - Diabetes mellitus [Unknown]
  - Therapeutic product effect incomplete [Unknown]
  - Dehydration [Unknown]

NARRATIVE: CASE EVENT DATE: 2018
